FAERS Safety Report 5118382-4 (Version None)
Quarter: 2006Q3

REPORT INFORMATION
  Report Type: 
  Country: None (occurrence: None)
  Receive Date: 20060926
  Receipt Date: 20060920
  Transmission Date: 20061208
  Serious: Yes (Other)
  Sender: FDA-Public Use
  Company Number: JP200608004026

PATIENT
  Age: 64 Year
  Sex: Male

DRUGS (7)
  1. GEMZAR [Suspect]
     Indication: BILE DUCT CANCER
     Dosage: 1000 MG, OTHER, INTRAVENOUS
     Route: 042
     Dates: start: 20060810, end: 20060817
  2. URSO (URSODEOXYCHOLIC ACID) TABLET [Concomitant]
  3. PARIET /JPN/ (RABEPRAZOLE SODIUM) TABLET [Concomitant]
  4. ALDACTONE [Concomitant]
  5. ITRIZOLE (ITRACONAZOLE) CAPSULE [Concomitant]
  6. MINOMYCIN (MINOCYCLINE HYDROCHLORIDE) TABLET [Concomitant]
  7. MOBIC [Concomitant]

REACTIONS (3)
  - ABDOMINAL TENDERNESS [None]
  - BLOOD INSULIN INCREASED [None]
  - HYPERHIDROSIS [None]
